FAERS Safety Report 14329758 (Version 2)
Quarter: 2018Q1

REPORT INFORMATION
  Report Type: Report from Study
  Country: US (occurrence: US)
  Receive Date: 20171227
  Receipt Date: 20180103
  Transmission Date: 20180509
  Serious: Yes (Death, Hospitalization)
  Sender: FDA-Public Use
  Company Number: US-PFIZER INC-2017540907

PATIENT
  Age: 69 Year
  Sex: Female

DRUGS (72)
  1. EPINEPHRINE. [Suspect]
     Active Substance: EPINEPHRINE
  2. SODIUM BICARBONATE. [Concomitant]
     Active Substance: SODIUM BICARBONATE
  3. TYLENOL [Concomitant]
     Active Substance: ACETAMINOPHEN
  4. PLASBUMIN-5 [Concomitant]
     Active Substance: ALBUMIN HUMAN
  5. PERIDEX [Concomitant]
     Active Substance: CHLORHEXIDINE GLUCONATE
  6. NOVOSEVEN RT [Concomitant]
     Active Substance: COAGULATION FACTOR VIIA RECOMBINANT HUMAN
  7. ELECTROLYTES NOS [Concomitant]
     Active Substance: ELECTROLYTES NOS
  8. COZAAR [Concomitant]
     Active Substance: LOSARTAN POTASSIUM
  9. PRILOSEC [Concomitant]
     Active Substance: OMEPRAZOLE MAGNESIUM
  10. POLYETHYLENE GLYCOL [Concomitant]
     Active Substance: POLYETHYLENE GLYCOLS
  11. LIQUITEARS [Concomitant]
     Active Substance: POLYVINYL ALCOHOL
  12. RIFAMPIN. [Concomitant]
     Active Substance: RIFAMPIN
  13. LYRICA [Concomitant]
     Active Substance: PREGABALIN
  14. MAXZIDE [Concomitant]
     Active Substance: HYDROCHLOROTHIAZIDE\TRIAMTERENE
  15. BLINDED THERAPY [Suspect]
     Active Substance: INVESTIGATIONAL PRODUCT
  16. VITAMIN B-1 [Concomitant]
     Active Substance: THIAMINE
  17. THAM [Concomitant]
     Active Substance: TROMETHAMINE
  18. ALBUTEROL. [Concomitant]
     Active Substance: ALBUTEROL
  19. GABAPENTIN. [Concomitant]
     Active Substance: GABAPENTIN
  20. NEOSPORIN [Concomitant]
     Active Substance: BACITRACIN ZINC\NEOMYCIN SULFATE\POLYMYXIN B SULFATE
  21. ZOSYN [Concomitant]
     Active Substance: PIPERACILLIN SODIUM\TAZOBACTAM SODIUM
  22. ZEMURON [Concomitant]
     Active Substance: ROCURONIUM BROMIDE
  23. COUMADIN [Concomitant]
     Active Substance: WARFARIN SODIUM
  24. VASOPRESSIN. [Concomitant]
     Active Substance: VASOPRESSIN
  25. CORDARONE [Concomitant]
     Active Substance: AMIODARONE HYDROCHLORIDE
  26. NIMBEX [Concomitant]
     Active Substance: CISATRACURIUM BESYLATE
  27. PEPCID [Concomitant]
     Active Substance: FAMOTIDINE
  28. NORCO [Concomitant]
     Active Substance: ACETAMINOPHEN\HYDROCODONE BITARTRATE
  29. LEVOPHED [Concomitant]
     Active Substance: NOREPINEPHRINE BITARTRATE
  30. PROTAMINE [Concomitant]
     Active Substance: PROTAMINE
  31. DEXTROSE. [Concomitant]
     Active Substance: DEXTROSE
  32. DOPAMINE [Concomitant]
     Active Substance: DOPAMINE\DOPAMINE HYDROCHLORIDE
  33. MILRINONE [Concomitant]
     Active Substance: MILRINONE
  34. NEOSYNEPHRINE [Concomitant]
     Active Substance: PHENYLEPHRINE HYDROCHLORIDE
  35. TRENTAL [Concomitant]
     Active Substance: PENTOXIFYLLINE
  36. VANCOMYCIN [Concomitant]
     Active Substance: VANCOMYCIN
  37. ELECTROLYTE SOLUTIONS [Concomitant]
     Active Substance: UNSPECIFIED INGREDIENT
  38. CALCIUM CHLORIDE. [Concomitant]
     Active Substance: CALCIUM CHLORIDE
  39. PRECEDEX [Concomitant]
     Active Substance: DEXMEDETOMIDINE HYDROCHLORIDE
  40. LASIX [Concomitant]
     Active Substance: FUROSEMIDE
  41. SUBLIMAZE [Concomitant]
     Active Substance: FENTANYL CITRATE
  42. GLYCOPYRROLATE. [Concomitant]
     Active Substance: GLYCOPYRROLATE
  43. PROTONIX [Concomitant]
     Active Substance: PANTOPRAZOLE SODIUM
  44. PMS-SENNOSIDES [Concomitant]
  45. SODIUM CHLORIDE. [Concomitant]
     Active Substance: SODIUM CHLORIDE
  46. SODIUM PHOSPHATE [Concomitant]
     Active Substance: SODIUM PHOSPHATE
  47. PLASBUMIN-25 LOW ALBUMIN [Concomitant]
  48. ASPIRIN. [Concomitant]
     Active Substance: ASPIRIN
  49. BACITRACIN ZINC. [Concomitant]
     Active Substance: BACITRACIN ZINC
  50. DOBUTAMINE [Concomitant]
     Active Substance: DOBUTAMINE\DOBUTAMINE HYDROCHLORIDE
  51. COLACE [Concomitant]
     Active Substance: DOCUSATE SODIUM
  52. DILAUDID [Concomitant]
     Active Substance: HYDROMORPHONE HYDROCHLORIDE
  53. MAGNESIUM SULFATE. [Concomitant]
     Active Substance: MAGNESIUM SULFATE
  54. POTASSIUM CHLORIDE. [Concomitant]
     Active Substance: POTASSIUM CHLORIDE
  55. ENEMA (SODIUM PHOSPHATE, DIBASIC\SODIUM PHOSPHATE, MONOBASIC) [Concomitant]
     Active Substance: SODIUM PHOSPHATE, DIBASIC\SODIUM PHOSPHATE, MONOBASIC
  56. CYKLOKAPRON [Concomitant]
     Active Substance: TRANEXAMIC ACID
  57. NORVASC [Concomitant]
     Active Substance: AMLODIPINE BESYLATE
  58. BACITRACIN. [Concomitant]
     Active Substance: BACITRACIN
  59. DULCOLAX NOS [Concomitant]
     Active Substance: BISACODYL OR DOCUSATE SODIUM
  60. ZINACEF [Concomitant]
     Active Substance: CEFUROXIME SODIUM
  61. CYMBALTA [Concomitant]
     Active Substance: DULOXETINE HYDROCHLORIDE
  62. GLUCOTROL [Concomitant]
     Active Substance: GLIPIZIDE
  63. DIFLUCAN [Concomitant]
     Active Substance: FLUCONAZOLE
  64. HEPARIN [Concomitant]
     Active Substance: HEPARIN SODIUM
  65. LACTATED RINGERS SOLUTION [Concomitant]
     Active Substance: CALCIUM CHLORIDE\POTASSIUM CHLORIDE\SODIUM CHLORIDE\SODIUM LACTATE
  66. DIPRIVAN [Concomitant]
     Active Substance: PROPOFOL
  67. ANGIOMAX [Concomitant]
     Active Substance: BIVALIRUDIN
  68. DEXTROSE IN WATER [Concomitant]
     Active Substance: DEXTROSE\WATER
  69. PLASMA-LYTE A [Concomitant]
     Active Substance: MAGNESIUM CHLORIDE\POTASSIUM CHLORIDE\SODIUM ACETATE\SODIUM CHLORIDE\SODIUM GLUCONATE
  70. NOVOLIN R [Concomitant]
     Active Substance: INSULIN HUMAN
  71. XYLOCAINE [Concomitant]
     Active Substance: LIDOCAINE HYDROCHLORIDE
  72. VERSED [Concomitant]
     Active Substance: MIDAZOLAM HYDROCHLORIDE

REACTIONS (13)
  - Mental status changes [Unknown]
  - Post procedural haemorrhage [Unknown]
  - Cardiac tamponade [Unknown]
  - Acute kidney injury [Unknown]
  - Atrial fibrillation [Unknown]
  - Intestinal ischaemia [Unknown]
  - Peripheral ischaemia [Unknown]
  - Acute hepatic failure [Unknown]
  - Cardiogenic shock [Unknown]
  - Disseminated intravascular coagulation [Unknown]
  - Sepsis [Fatal]
  - Ventricular tachycardia [Unknown]
  - Acute respiratory failure [Unknown]

NARRATIVE: CASE EVENT DATE: 20160304
